FAERS Safety Report 16779928 (Version 1)
Quarter: 2019Q3

REPORT INFORMATION
  Report Type: Spontaneous
  Country: JP (occurrence: JP)
  Receive Date: 20190906
  Receipt Date: 20190906
  Transmission Date: 20191005
  Serious: Yes (Death, Hospitalization, Other)
  Sender: FDA-Public Use
  Company Number: JP-ACTELION-A-CH2019-194934

PATIENT
  Age: 2 Year
  Sex: Male

DRUGS (1)
  1. BRAZAVES [Suspect]
     Active Substance: MIGLUSTAT
     Indication: NIEMANN-PICK DISEASE
     Route: 048

REACTIONS (11)
  - Epilepsy [Unknown]
  - Hypertonia [Unknown]
  - Aspiration [Unknown]
  - Respiratory tract haemorrhage [Fatal]
  - Neurological decompensation [Unknown]
  - Multiple organ dysfunction syndrome [Fatal]
  - Respiratory failure [Unknown]
  - Dysphagia [Not Recovered/Not Resolved]
  - Disseminated intravascular coagulation [Fatal]
  - Laryngotracheal operation [Unknown]
  - Pneumonia aspiration [Unknown]
